FAERS Safety Report 8904054 (Version 1)
Quarter: 2012Q4

REPORT INFORMATION
  Report Type: 
  Country: FI (occurrence: FI)
  Receive Date: 20121113
  Receipt Date: 20121113
  Transmission Date: 20130627
  Serious: Yes (Other)
  Sender: FDA-Public Use
  Company Number: PHHY2012FI102894

PATIENT
  Sex: Male

DRUGS (2)
  1. DEFEROXAMINE [Suspect]
     Indication: IRON OVERLOAD
     Dosage: 20 mg/kg, 8- to 12- hour subcutaneous infusion 5-7 nights per week
     Route: 058
  2. DEFERASIROX [Suspect]
     Indication: IRON OVERLOAD
     Dosage: 20 mg/kg, UNK

REACTIONS (1)
  - Growth hormone deficiency [Unknown]
